FAERS Safety Report 17949614 (Version 1)
Quarter: 2020Q2

REPORT INFORMATION
  Report Type: Spontaneous
  Country: US (occurrence: US)
  Receive Date: 20200626
  Receipt Date: 20200626
  Transmission Date: 20200714
  Serious: Yes (Hospitalization)
  Sender: FDA-Public Use
  Company Number: US-ASTRAZENECA-2020SE79853

PATIENT
  Age: 27904 Day
  Sex: Female
  Weight: 64.9 kg

DRUGS (1)
  1. BYDUREON BCISE [Suspect]
     Active Substance: EXENATIDE
     Indication: TYPE 2 DIABETES MELLITUS
     Route: 058

REACTIONS (6)
  - Fall [Recovering/Resolving]
  - Cervical vertebral fracture [Recovering/Resolving]
  - Device issue [Unknown]
  - Hypoaesthesia [Unknown]
  - Incorrect dose administered by device [Unknown]
  - Memory impairment [Unknown]

NARRATIVE: CASE EVENT DATE: 20200619
